FAERS Safety Report 23898239 (Version 1)
Quarter: 2024Q2

REPORT INFORMATION
  Report Type: Spontaneous
  Country: US (occurrence: US)
  Receive Date: 20240524
  Receipt Date: 20240524
  Transmission Date: 20240716
  Serious: Yes (Other)
  Sender: FDA-Public Use
  Company Number: US-FOUNDATIONCONSUMERHC-2024-US-029026

PATIENT
  Age: 20 Year
  Sex: Female
  Weight: 58.97 kg

DRUGS (5)
  1. PLAN B ONE-STEP [Suspect]
     Active Substance: LEVONORGESTREL
     Indication: Post coital contraception
     Dosage: 1.5 MG TAB X UNSPECIFIED NUMBER OF DOSES
     Route: 048
     Dates: end: 20240519
  2. Xualane Birth Control Patch [Concomitant]
     Dosage: 1 PATCH EVERY SUNDAY X 3 WEEKS AND THEN OFF A WEEK
     Route: 061
     Dates: start: 2016
  3. LAMOTRIGINE [Concomitant]
     Active Substance: LAMOTRIGINE
  4. HYDROXYZINE [Concomitant]
     Active Substance: HYDROXYZINE HYDROCHLORIDE
  5. BUSPIRONE [Concomitant]
     Active Substance: BUSPIRONE HYDROCHLORIDE

REACTIONS (7)
  - Intentional product misuse [Recovered/Resolved]
  - Hallucination [Unknown]
  - Mood swings [Not Recovered/Not Resolved]
  - Suicidal ideation [Unknown]
  - Product use in unapproved indication [Recovered/Resolved]
  - Paranoia [Not Recovered/Not Resolved]
  - Insomnia [Not Recovered/Not Resolved]

NARRATIVE: CASE EVENT DATE: 20240519
